FAERS Safety Report 6839020-6 (Version None)
Quarter: 2010Q3

REPORT INFORMATION
  Report Type: 
  Country: None (occurrence: None)
  Receive Date: 20100713
  Receipt Date: 20081117
  Transmission Date: 20110219
  Serious: No
  Sender: FDA-Public Use
  Company Number: US-PFIZER INC-2007049888

PATIENT
  Sex: Female
  Weight: 102.06 kg

DRUGS (14)
  1. CHANTIX [Suspect]
     Indication: SMOKING CESSATION THERAPY
     Dates: start: 20070606
  2. OXYCONTIN [Concomitant]
  3. GABAPENTIN [Concomitant]
  4. FOLIC ACID [Concomitant]
  5. ACETYLSALICYLIC ACID [Concomitant]
  6. BUPROPION [Concomitant]
  7. LIPITOR [Concomitant]
  8. METOPROLOL [Concomitant]
  9. ALLOPURINOL [Concomitant]
  10. EFFEXOR [Concomitant]
  11. HYDROCHLOROTHIAZIDE [Concomitant]
  12. PLAVIX [Concomitant]
  13. ARTHROTEC [Concomitant]
  14. ATACAND [Concomitant]

REACTIONS (4)
  - DYSGEUSIA [None]
  - FATIGUE [None]
  - MEDICATION ERROR [None]
  - SOMNOLENCE [None]
